FAERS Safety Report 14097369 (Version 1)
Quarter: 2017Q4

REPORT INFORMATION
  Report Type: Spontaneous
  Country: US (occurrence: US)
  Receive Date: 20171016
  Receipt Date: 20171016
  Transmission Date: 20180321
  Serious: No
  Sender: FDA-Public Use
  Company Number: None

PATIENT
  Age: 54 Year
  Sex: Female
  Weight: 65.25 kg

DRUGS (9)
  1. FISH OIL [Concomitant]
     Active Substance: FISH OIL
  2. FLUTICASONE PROPIONATE NASAL SPRAY, USP [Suspect]
     Active Substance: FLUTICASONE PROPIONATE
     Indication: HYPERSENSITIVITY
     Dosage: QUANTITY:1 SPRAY(S);?
     Route: 055
     Dates: start: 20171005, end: 20171006
  3. LUTEIN WITH ZEAXANTHIN [Concomitant]
  4. PINE BARK [Concomitant]
  5. PHOSPHATIDYLSERINE [Concomitant]
  6. VITAMIN D2 [Concomitant]
     Active Substance: ERGOCALCIFEROL
  7. ASTAXANTHIN [Concomitant]
  8. MSM WITH CHONDROITIN [Concomitant]
  9. TURMERIC COMPLEX [Concomitant]

REACTIONS (2)
  - Anosmia [None]
  - Ageusia [None]

NARRATIVE: CASE EVENT DATE: 20171006
